FAERS Safety Report 12305197 (Version 1)
Quarter: 2016Q2

REPORT INFORMATION
  Report Type: Spontaneous
  Country: US (occurrence: None)
  Receive Date: 20160425
  Receipt Date: 20160425
  Transmission Date: 20160815
  Serious: Yes (Life-Threatening, Hospitalization)
  Sender: FDA-Public Use
  Company Number: None

PATIENT
  Age: 72 Year
  Sex: Male
  Weight: 71.4 kg

DRUGS (1)
  1. APIXABAN 5 MG BMS [Suspect]
     Active Substance: APIXABAN
     Indication: ATRIAL FIBRILLATION
     Route: 048
     Dates: start: 20150401, end: 20160411

REACTIONS (2)
  - Subdural haematoma [None]
  - Mental status changes [None]

NARRATIVE: CASE EVENT DATE: 20160411
